FAERS Safety Report 24414630 (Version 2)
Quarter: 2024Q4

REPORT INFORMATION
  Report Type: Report from Study
  Country: US (occurrence: US)
  Receive Date: 20241009
  Receipt Date: 20241015
  Transmission Date: 20250115
  Serious: Yes (Other)
  Sender: ABBVIE
  Company Number: US-ABBVIE-5953529

PATIENT
  Age: 55 Year
  Sex: Female
  Weight: 49.895 kg

DRUGS (1)
  1. HUMIRA [Suspect]
     Active Substance: ADALIMUMAB
     Indication: Product used for unknown indication
     Dosage: UNKNOWN
     Route: 058
     Dates: start: 2019, end: 2020

REACTIONS (5)
  - Appendicitis perforated [Unknown]
  - Inflammation [Unknown]
  - Weight decreased [Unknown]
  - Dyspepsia [Unknown]
  - Psoriasis [Unknown]

NARRATIVE: CASE EVENT DATE: 20240101
